FAERS Safety Report 8584905-6 (Version None)
Quarter: 2012Q3

REPORT INFORMATION
  Report Type: 
  Country: None (occurrence: None)
  Receive Date: 20120810
  Receipt Date: 20120808
  Transmission Date: 20120928
  Serious: No
  Sender: FDA-Public Use
  Company Number: US-PFIZER INC-2012193788

PATIENT
  Age: 44 Year
  Sex: Male
  Weight: 74 kg

DRUGS (5)
  1. LIDOCAINE [Suspect]
     Indication: PAIN
     Dosage: UNK
  2. ALEVE [Suspect]
     Indication: PAIN
     Dosage: UNK, AS NEEDED
  3. ADVIL [Suspect]
     Indication: PAIN
     Dosage: 400 MG TO 800 MG AS NEEDED
  4. ULTRACET [Suspect]
     Indication: PAIN
     Dosage: 37.5 MG, 2X/DAY
  5. NASONEX [Concomitant]
     Indication: HYPERSENSITIVITY
     Dosage: UNK, DAILY

REACTIONS (1)
  - DRUG INEFFECTIVE [None]
